FAERS Safety Report 8812640 (Version 2)
Quarter: 2013Q4

REPORT INFORMATION
  Report Type: Spontaneous
  Country: US (occurrence: US)
  Receive Date: 20120927
  Receipt Date: 20131106
  Transmission Date: 20140711
  Serious: Yes (Hospitalization, Disabling, Other)
  Sender: FDA-Public Use
  Company Number: US-009507513-1206USA00882

PATIENT
  Sex: Female

DRUGS (9)
  1. FOSAMAX [Suspect]
     Indication: OSTEOPOROSIS
     Dosage: 70 MG, UNK
     Route: 048
     Dates: start: 20011009, end: 20101224
  2. CALCIUM (UNSPECIFIED) [Concomitant]
     Dosage: 600 MG, UNK
     Dates: start: 1994
  3. IRON (UNSPECIFIED) [Concomitant]
     Dosage: 65 MG, UNK
     Dates: start: 1994
  4. ASCORBIC ACID [Concomitant]
     Dosage: 300 MG, UNK
     Dates: start: 1994
  5. VITAMINS (UNSPECIFIED) [Concomitant]
     Dosage: 1 UNK, UNK
     Dates: start: 1994
  6. CHONDROITIN SULFATE SODIUM (+) GLUCOSAMINE SULFATE [Concomitant]
     Dosage: 1200 MG, UNK
     Dates: start: 1994
  7. SINEMET [Concomitant]
     Indication: PARKINSON^S DISEASE
     Dosage: UNK
     Dates: start: 1994
  8. AMANTADINE HYDROCHLORIDE [Concomitant]
     Indication: PARKINSON^S DISEASE
     Dosage: UNK
     Dates: start: 1994
  9. REQUIP [Concomitant]
     Indication: PARKINSON^S DISEASE
     Dosage: UNK
     Dates: start: 2009, end: 201201

REACTIONS (8)
  - Femur fracture [Recovered/Resolved]
  - Intramedullary rod insertion [Recovered/Resolved]
  - Spinal fusion surgery [Not Recovered/Not Resolved]
  - Parkinson^s disease [Not Recovered/Not Resolved]
  - Exposed bone in jaw [Unknown]
  - Jaw disorder [Unknown]
  - Dental care [Unknown]
  - Endodontic procedure [Unknown]
